FAERS Safety Report 20665443 (Version 6)
Quarter: 2022Q2

REPORT INFORMATION
  Report Type: Spontaneous
  Country: US (occurrence: US)
  Receive Date: 20220402
  Receipt Date: 20220527
  Transmission Date: 20220721
  Serious: Yes (Death, Hospitalization, Disabling, Other)
  Sender: FDA-Public Use
  Company Number: US-UNITED THERAPEUTICS-UNT-2022-006888

PATIENT
  Sex: Male

DRUGS (2)
  1. TYVASO [Suspect]
     Active Substance: TREPROSTINIL
     Indication: Pulmonary arterial hypertension
     Dosage: UNK
     Dates: start: 20211210
  2. TYVASO [Suspect]
     Active Substance: TREPROSTINIL
     Dosage: 48 ?G, QID

REACTIONS (6)
  - Death [Fatal]
  - Dyspnoea [Unknown]
  - Asthenia [Unknown]
  - Back disorder [Unknown]
  - Disability [Unknown]
  - Mobility decreased [Unknown]

NARRATIVE: CASE EVENT DATE: 20210101
